FAERS Safety Report 26076131 (Version 1)
Quarter: 2025Q4

REPORT INFORMATION
  Report Type: Spontaneous
  Country: EU (occurrence: EU)
  Receive Date: 20251121
  Receipt Date: 20251121
  Transmission Date: 20260118
  Serious: Yes (Life-Threatening, Hospitalization, Other)
  Sender: BRISTOL-MYERS SQUIBB COMPANY
  Company Number: EU-BRISTOL-MYERS SQUIBB COMPANY-2025-157541

PATIENT
  Age: 68 Year
  Sex: Female

DRUGS (6)
  1. IPILIMUMAB [Suspect]
     Active Substance: IPILIMUMAB
     Indication: Squamous cell carcinoma
  2. IPILIMUMAB [Suspect]
     Active Substance: IPILIMUMAB
     Dosage: 5TH CYCLE
  3. NIVOLUMAB [Suspect]
     Active Substance: NIVOLUMAB
     Indication: Squamous cell carcinoma
  4. NIVOLUMAB [Suspect]
     Active Substance: NIVOLUMAB
     Dosage: 5TH CYCLE
  5. CARBOPLATIN [Suspect]
     Active Substance: CARBOPLATIN
     Indication: Squamous cell carcinoma
  6. PACLITAXEL [Suspect]
     Active Substance: PACLITAXEL
     Indication: Squamous cell carcinoma

REACTIONS (9)
  - Circulatory collapse [Unknown]
  - Agranulocytosis [Recovering/Resolving]
  - Hypothyroidism [Unknown]
  - Respiratory tract infection [Unknown]
  - Gastrointestinal haemorrhage [Unknown]
  - Intestinal perforation [Unknown]
  - Pneumonia [Unknown]
  - Hyperthyroidism [Unknown]
  - Respiratory failure [Unknown]

NARRATIVE: CASE EVENT DATE: 20250101
